FAERS Safety Report 8159670-7 (Version None)
Quarter: 2012Q1

REPORT INFORMATION
  Report Type: 
  Country: None (occurrence: None)
  Receive Date: 20120223
  Receipt Date: 20120217
  Transmission Date: 20120608
  Serious: No
  Sender: FDA-Public Use
  Company Number: PH-ROCHE-769011

PATIENT
  Sex: Female
  Weight: 62.8 kg

DRUGS (3)
  1. HERCEPTIN [Suspect]
     Dosage: DOSE HELD
     Route: 042
  2. PACLITAXEL [Suspect]
     Indication: BREAST CANCER METASTATIC
     Dosage: DATE OF LAST DOSE: 18 MARCH 2011
     Route: 042
  3. HERCEPTIN [Suspect]
     Indication: BREAST CANCER METASTATIC
     Dosage: LOADING DOSE
     Route: 042

REACTIONS (1)
  - LEFT VENTRICULAR DYSFUNCTION [None]
